FAERS Safety Report 16942614 (Version 2)
Quarter: 2020Q1

REPORT INFORMATION
  Report Type: Spontaneous
  Country: PL (occurrence: PL)
  Receive Date: 20191021
  Receipt Date: 20200205
  Transmission Date: 20200409
  Serious: Yes (Other)
  Sender: FDA-Public Use
  Company Number: PL-REGENERON PHARMACEUTICALS, INC.-2019-60009

PATIENT

DRUGS (1)
  1. EYLEA [Suspect]
     Active Substance: AFLIBERCEPT
     Indication: PRODUCT USED FOR UNKNOWN INDICATION
     Dosage: FOURTH EYLEA INJECTION AFTER 2 MONTHS OF THE PREVIOUS INJECTION. PREVIOUS INJECTIONS PERFORMED MONTH

REACTIONS (1)
  - Retinal haemorrhage [Unknown]
